FAERS Safety Report 4375943-8 (Version None)
Quarter: 2004Q2

REPORT INFORMATION
  Report Type: 
  Country: None (occurrence: None)
  Receive Date: 20040607
  Receipt Date: 20040525
  Transmission Date: 20050107
  Serious: No
  Sender: FDA-Public Use
  Company Number: 02100-JPN-04-0139

PATIENT
  Age: 68 Year
  Sex: Male

DRUGS (5)
  1. CILOSTAZOL [Suspect]
     Dosage: 100 MG
     Route: 048
     Dates: start: 20040323, end: 20040420
  2. EPALRESTAT [Suspect]
     Dosage: 150 MG
     Route: 048
     Dates: start: 20040323, end: 20040420
  3. ACARBOSE [Suspect]
     Dosage: 300 MG
     Route: 048
     Dates: start: 20040323, end: 20040420
  4. NATEGLINIDE [Suspect]
     Dosage: 270 MG
     Route: 048
     Dates: start: 20040323, end: 20040420
  5. CARBAMAZEPINE [Suspect]
     Dosage: 200 MG
     Route: 048
     Dates: start: 20040329, end: 20040420

REACTIONS (2)
  - GENERALISED ERYTHEMA [None]
  - SWELLING [None]
